FAERS Safety Report 18153097 (Version 9)
Quarter: 2022Q1

REPORT INFORMATION
  Report Type: Spontaneous
  Country: US (occurrence: US)
  Receive Date: 20200815
  Receipt Date: 20220223
  Transmission Date: 20220423
  Serious: No
  Sender: FDA-Public Use
  Company Number: US-GLAXOSMITHKLINE-US2020AMR135869

PATIENT
  Sex: Female

DRUGS (8)
  1. ZEJULA [Suspect]
     Active Substance: NIRAPARIB
     Indication: Ovarian cancer
     Dosage: 200 MG, QD (TWO CAPSULES IN THE PM WITH FOOD)
     Dates: start: 20200702
  2. ZEJULA [Suspect]
     Active Substance: NIRAPARIB
     Dosage: 200 MG, QD (200MG IN THE PM)
  3. ZEJULA [Suspect]
     Active Substance: NIRAPARIB
     Dosage: 200 MG, QD
     Route: 048
     Dates: start: 20200720
  4. ZEJULA [Suspect]
     Active Substance: NIRAPARIB
     Dosage: 200 MG, QD
     Route: 048
  5. ZEJULA [Suspect]
     Active Substance: NIRAPARIB
     Dosage: 200 MG, QD
     Route: 048
  6. ZEJULA [Suspect]
     Active Substance: NIRAPARIB
     Dosage: 200 MG, QD
  7. ZEJULA [Suspect]
     Active Substance: NIRAPARIB
     Dosage: 200 MG, QD
     Route: 048
  8. ZEJULA [Suspect]
     Active Substance: NIRAPARIB
     Dosage: 200 MG, QD
     Route: 048

REACTIONS (17)
  - Headache [Unknown]
  - Nausea [Unknown]
  - Dizziness [Unknown]
  - Adverse drug reaction [Unknown]
  - Full blood count decreased [Unknown]
  - Differential white blood cell count abnormal [Recovered/Resolved]
  - Fatigue [Unknown]
  - Abdominal discomfort [Recovering/Resolving]
  - Abdominal pain upper [Unknown]
  - Gastrooesophageal reflux disease [Recovering/Resolving]
  - Laboratory test abnormal [Unknown]
  - Red blood cell count decreased [Unknown]
  - Sleep disorder [Not Recovered/Not Resolved]
  - Gastritis [Recovering/Resolving]
  - Platelet count decreased [Unknown]
  - Lung disorder [Unknown]
  - Product dose omission issue [Unknown]
